FAERS Safety Report 22095328 (Version 1)
Quarter: 2023Q1

REPORT INFORMATION
  Report Type: Spontaneous
  Country: US (occurrence: US)
  Receive Date: 20230314
  Receipt Date: 20230314
  Transmission Date: 20230418
  Serious: No
  Sender: FDA-Public Use
  Company Number: US-Teikoku Pharma USA-TPU2023-00080

PATIENT
  Sex: Male

DRUGS (1)
  1. LIDOCAINE PATCH [Suspect]
     Active Substance: LIDOCAINE
     Indication: Nerve injury
     Dosage: HE WOULD APPLY 1 OR 2 PATCHES ON CLEAR SKIN, WHEREVER IT WAS NEEDED ON THE BODY, AND WOULD ONLY USE
     Route: 061
     Dates: start: 2009

REACTIONS (1)
  - Therapeutic product effect incomplete [Unknown]

NARRATIVE: CASE EVENT DATE: 20090101
